FAERS Safety Report 5746709-9 (Version None)
Quarter: 2008Q2

REPORT INFORMATION
  Report Type: 
  Country: None (occurrence: None)
  Receive Date: 20080522
  Receipt Date: 20080515
  Transmission Date: 20081010
  Serious: Yes (Other)
  Sender: FDA-Public Use
  Company Number: US-ASTRAZENECA-2008UW10060

PATIENT
  Age: 54 Year
  Sex: Female
  Weight: 79.5 kg

DRUGS (7)
  1. SEROQUEL [Suspect]
     Indication: ANXIETY
     Dosage: VARIOUS (INCLUDING BUT NOT LIMITED TO 150 MG; 300 MG)
     Route: 048
     Dates: start: 20020101
  2. SEROQUEL [Suspect]
     Indication: BIPOLAR DISORDER
     Dosage: VARIOUS (INCLUDING BUT NOT LIMITED TO 150 MG; 300 MG)
     Route: 048
     Dates: start: 20020101
  3. SEROQUEL [Suspect]
     Indication: DEPRESSION
     Dosage: VARIOUS (INCLUDING BUT NOT LIMITED TO 150 MG; 300 MG)
     Route: 048
     Dates: start: 20020101
  4. REDUX [Concomitant]
  5. ABILIFY [Concomitant]
     Dates: start: 20010401
  6. ZYPREXA [Concomitant]
     Dates: start: 20010901, end: 20020501
  7. LEXAPRO [Concomitant]
     Dates: start: 20060101, end: 20070101

REACTIONS (9)
  - BLOOD CHOLESTEROL INCREASED [None]
  - BREAST CANCER [None]
  - CHEST PAIN [None]
  - CONVULSION [None]
  - DIABETES MELLITUS [None]
  - HYPERTENSION [None]
  - KNEE ARTHROPLASTY [None]
  - OBESITY [None]
  - SLEEP APNOEA SYNDROME [None]
